FAERS Safety Report 5430071-5 (Version None)
Quarter: 2007Q3

REPORT INFORMATION
  Report Type: 
  Country: None (occurrence: None)
  Receive Date: 20070829
  Receipt Date: 20070817
  Transmission Date: 20080115
  Serious: Yes (Other)
  Sender: FDA-Public Use
  Company Number: US-PFIZER INC-2007069514

PATIENT
  Sex: Male

DRUGS (1)
  1. LYRICA [Suspect]
     Indication: FIBROMYALGIA
     Dates: start: 20060101, end: 20060101

REACTIONS (12)
  - ARTHRALGIA [None]
  - ARTHROPOD BITE [None]
  - ASTHENIA [None]
  - BACK PAIN [None]
  - BLOOD GLUCOSE INCREASED [None]
  - DIZZINESS [None]
  - DRUG WITHDRAWAL SYNDROME [None]
  - FEELING ABNORMAL [None]
  - INSOMNIA [None]
  - PAIN [None]
  - RENAL PAIN [None]
  - WEIGHT INCREASED [None]
